FAERS Safety Report 8498254-8 (Version None)
Quarter: 2012Q3

REPORT INFORMATION
  Report Type: 
  Country: None (occurrence: None)
  Receive Date: 20120709
  Receipt Date: 20120621
  Transmission Date: 20120928
  Serious: No
  Sender: FDA-Public Use
  Company Number: US-AMGEN-USASP2011011468

PATIENT
  Age: 24 Year
  Sex: Female

DRUGS (2)
  1. ENBREL [Suspect]
     Indication: PSORIASIS
     Dosage: 50 MG, QWK
     Dates: start: 20080317
  2. ENBREL [Suspect]
     Dosage: UNK UNK, QWK
     Dates: start: 20090101, end: 20110701

REACTIONS (4)
  - PAIN [None]
  - DRUG DOSE OMISSION [None]
  - INJECTION SITE PAIN [None]
  - PSORIASIS [None]
